FAERS Safety Report 8796749 (Version 3)
Quarter: 2013Q1

REPORT INFORMATION
  Report Type: Spontaneous
  Country: US (occurrence: US)
  Receive Date: 20120919
  Receipt Date: 20130218
  Transmission Date: 20140127
  Serious: Yes (Disabling)
  Sender: FDA-Public Use
  Company Number: US-009507513-1209USA006642

PATIENT
  Age: 16 Year
  Sex: Female
  Weight: 81.18 kg

DRUGS (4)
  1. IMPLANON [Suspect]
     Indication: CONTRACEPTION
     Dosage: 1 IMPLANT
     Route: 059
     Dates: start: 20100826
  2. DOXYCYCLINE [Concomitant]
     Dosage: 100 MG, BID
  3. DIFLUCAN [Concomitant]
     Indication: FUNGAL INFECTION
     Dosage: 150 MG, ONCE
  4. MOTRIN [Concomitant]
     Dosage: 800 MG, PRN EVERY 8 HOURS

REACTIONS (1)
  - Dermatitis [Not Recovered/Not Resolved]
